FAERS Safety Report 22648714 (Version 1)
Quarter: 2023Q2

REPORT INFORMATION
  Report Type: Spontaneous
  Country: US (occurrence: None)
  Receive Date: 20230628
  Receipt Date: 20230628
  Transmission Date: 20230722
  Serious: Yes (Other)
  Sender: FDA-Public Use
  Company Number: 2023A146547

PATIENT

DRUGS (1)
  1. SYMLIN [Suspect]
     Active Substance: PRAMLINTIDE ACETATE
     Route: 058

REACTIONS (3)
  - Blood glucose increased [Unknown]
  - Device use issue [Unknown]
  - Device malfunction [Unknown]
